FAERS Safety Report 6492733-0 (Version None)
Quarter: 2009Q4

REPORT INFORMATION
  Report Type: 
  Country: None (occurrence: None)
  Receive Date: 20091214
  Receipt Date: 20091208
  Transmission Date: 20100525
  Serious: Yes (Death)
  Sender: FDA-Public Use
  Company Number: JP-BAYER-200913975BYL

PATIENT
  Age: 88 Year
  Sex: Male
  Weight: 59 kg

DRUGS (14)
  1. NEXAVAR [Suspect]
     Indication: HEPATIC NEOPLASM MALIGNANT
     Dosage: TOTAL DAILY DOSE: 800 MG  UNIT DOSE: 200 MG
     Route: 048
     Dates: start: 20091006, end: 20091020
  2. ITOPRIDE HYDROCHLORIDE [Concomitant]
     Route: 048
     Dates: start: 20091002, end: 20091019
  3. TAIPROTON [Concomitant]
     Route: 048
     Dates: start: 20091002, end: 20091025
  4. MAGNESIUM OXIDE [Concomitant]
     Route: 048
     Dates: start: 20091002, end: 20091025
  5. SENEVACUL [Concomitant]
     Route: 048
     Dates: start: 20091002, end: 20091021
  6. FLIVAS [Concomitant]
     Route: 048
     Dates: start: 20091002, end: 20091019
  7. MECOBALAMIN [Concomitant]
     Route: 048
     Dates: start: 20091002, end: 20091019
  8. TRINOSIN G [Concomitant]
     Route: 048
     Dates: start: 20091002, end: 20091019
  9. NORVASC [Concomitant]
     Route: 048
     Dates: start: 20091005
  10. KERATINAMIN [Concomitant]
     Indication: PROPHYLAXIS
     Route: 061
     Dates: start: 20091007, end: 20091026
  11. ALDACTONE [Concomitant]
     Route: 048
     Dates: start: 20091014, end: 20091026
  12. PIRETAZOL [Concomitant]
     Route: 042
     Dates: start: 20091020, end: 20091023
  13. PURSENNID [Concomitant]
     Route: 048
     Dates: start: 20091022, end: 20091026
  14. WYSTAL [Concomitant]
     Route: 042
     Dates: start: 20091023, end: 20091025

REACTIONS (2)
  - BLOOD BILIRUBIN INCREASED [None]
  - HEPATIC NEOPLASM MALIGNANT [None]
